FAERS Safety Report 13916729 (Version 1)
Quarter: 2017Q3

REPORT INFORMATION
  Report Type: Spontaneous
  Country: JP (occurrence: JP)
  Receive Date: 20170829
  Receipt Date: 20170829
  Transmission Date: 20171127
  Serious: Yes (Death, Hospitalization, Other)
  Sender: FDA-Public Use
  Company Number: JP-JNJFOC-20170808476

PATIENT
  Age: 83 Year
  Sex: Female

DRUGS (7)
  1. XARELTO [Suspect]
     Active Substance: RIVAROXABAN
     Indication: ATRIAL FIBRILLATION
     Route: 048
     Dates: start: 20141004, end: 20141027
  2. FAMOTIDINE. [Concomitant]
     Active Substance: FAMOTIDINE
     Route: 048
     Dates: start: 20170420, end: 20170803
  3. VALSARTAN. [Concomitant]
     Active Substance: VALSARTAN
     Route: 048
     Dates: start: 20170420, end: 20170803
  4. MAGMITT [Concomitant]
     Active Substance: MAGNESIUM OXIDE
     Route: 048
     Dates: start: 20151201, end: 20170803
  5. MYSLEE [Concomitant]
     Active Substance: ZOLPIDEM TARTRATE
     Route: 048
     Dates: start: 20170420, end: 20170803
  6. XARELTO [Suspect]
     Active Substance: RIVAROXABAN
     Indication: ATRIAL FIBRILLATION
     Route: 048
     Dates: start: 201503, end: 20170303
  7. DIGOSIN [Concomitant]
     Active Substance: DIGOXIN
     Route: 048
     Dates: start: 20110208, end: 20170803

REACTIONS (3)
  - Subarachnoid haemorrhage [Fatal]
  - Gastrointestinal haemorrhage [Unknown]
  - Brain herniation [Unknown]

NARRATIVE: CASE EVENT DATE: 20170804
